FAERS Safety Report 4697141-0 (Version None)
Quarter: 2005Q2

REPORT INFORMATION
  Report Type: 
  Country: None (occurrence: None)
  Receive Date: 20050622
  Receipt Date: 20050412
  Transmission Date: 20051028
  Serious: Yes (Hospitalization)
  Sender: FDA-Public Use
  Company Number: PHEH2005US04236

PATIENT
  Age: 74 Year
  Sex: Female

DRUGS (4)
  1. FEMARA [Suspect]
     Indication: BREAST CANCER
     Dosage: 2.5 MG, QHS
     Dates: start: 20040101
  2. VITAMIN D [Concomitant]
  3. CALCITRIOL [Suspect]
     Dosage: 25 MCG
     Dates: start: 20041213, end: 20050527
  4. CALCITRIOL [Suspect]
     Dosage: 10 MCG
     Dates: start: 20050528

REACTIONS (10)
  - ARTHRITIS [None]
  - BLOOD CALCIUM INCREASED [None]
  - BLOOD URINE PRESENT [None]
  - FLUID RETENTION [None]
  - LITHOTRIPSY [None]
  - NEPHROLITHIASIS [None]
  - PAIN [None]
  - PAIN IN EXTREMITY [None]
  - TINNITUS [None]
  - WEIGHT INCREASED [None]
